FAERS Safety Report 5645276-8 (Version None)
Quarter: 2008Q1

REPORT INFORMATION
  Report Type: 
  Country: None (occurrence: None)
  Receive Date: 20080229
  Receipt Date: 20080226
  Transmission Date: 20080703
  Serious: Yes (Disabling)
  Sender: FDA-Public Use
  Company Number: ZA-ASTRAZENECA-2008SE00069

PATIENT
  Age: 31 Year
  Sex: Female
  Weight: 77 kg

DRUGS (4)
  1. ZOLADEX [Suspect]
     Route: 058
     Dates: start: 20071101, end: 20071215
  2. LAMIDON [Concomitant]
  3. MALIPAXIN [Concomitant]
  4. LEPONEX [Concomitant]

REACTIONS (7)
  - CYST [None]
  - DEPRESSION [None]
  - DRY SKIN [None]
  - FEELING HOT [None]
  - FLUID RETENTION [None]
  - HEADACHE [None]
  - HOT FLUSH [None]
